FAERS Safety Report 14167441 (Version 1)
Quarter: 2017Q4

REPORT INFORMATION
  Report Type: Report from Study
  Country: None (occurrence: BR)
  Receive Date: 20171108
  Receipt Date: 20171108
  Transmission Date: 20180321
  Serious: Yes (Other)
  Sender: FDA-Public Use
  Company Number: BR-ABBVIE-17K-020-2150160-00

PATIENT
  Age: 45 Year
  Sex: Female
  Weight: 51.2 kg

DRUGS (4)
  1. HUMIRA [Suspect]
     Active Substance: ADALIMUMAB
     Route: 058
     Dates: end: 2017
  2. HUMIRA [Suspect]
     Active Substance: ADALIMUMAB
     Route: 058
     Dates: start: 2011
  3. HUMIRA [Suspect]
     Active Substance: ADALIMUMAB
     Indication: CROHN^S DISEASE
     Dosage: LOADING DOSE, WEEK 0
     Route: 058
     Dates: start: 20110601, end: 20110601
  4. HUMIRA [Suspect]
     Active Substance: ADALIMUMAB
     Dosage: LOADING DOSE, WEEK 2
     Route: 058
     Dates: start: 20110615, end: 20110615

REACTIONS (9)
  - Red blood cell count decreased [Recovering/Resolving]
  - Anal abscess [Not Recovered/Not Resolved]
  - Live birth [Unknown]
  - Intestinal perforation [Recovered/Resolved]
  - Nephrolithiasis [Not Recovered/Not Resolved]
  - Abscess intestinal [Recovered/Resolved]
  - Abscess intestinal [Recovered/Resolved]
  - Abscess intestinal [Recovered/Resolved]
  - Exposure during pregnancy [Unknown]

NARRATIVE: CASE EVENT DATE: 2014
